FAERS Safety Report 22953183 (Version 2)
Quarter: 2025Q1

REPORT INFORMATION
  Report Type: Spontaneous
  Country: BE (occurrence: BE)
  Receive Date: 20230918
  Receipt Date: 20250304
  Transmission Date: 20250409
  Serious: Yes (Other)
  Sender: ABBVIE
  Company Number: BE-ABBVIE-5410783

PATIENT
  Age: 38 Year
  Sex: Female

DRUGS (1)
  1. LEVONORGESTREL [Suspect]
     Active Substance: LEVONORGESTREL
     Indication: Contraception
     Route: 015
     Dates: start: 20230819

REACTIONS (3)
  - Cervical conisation [Unknown]
  - Uterine perforation [Unknown]
  - Uterine cervix stenosis [Unknown]

NARRATIVE: CASE EVENT DATE: 20230101
